FAERS Safety Report 13032601 (Version 3)
Quarter: 2017Q1

REPORT INFORMATION
  Report Type: Spontaneous
  Country: US (occurrence: US)
  Receive Date: 20161215
  Receipt Date: 20170301
  Transmission Date: 20170428
  Serious: Yes (Other)
  Sender: FDA-Public Use
  Company Number: US-PFIZER INC-2016579970

PATIENT
  Age: 64 Year
  Sex: Female

DRUGS (2)
  1. XANAX [Suspect]
     Active Substance: ALPRAZOLAM
     Indication: ANXIETY
     Dosage: UNK, 1X/DAY
     Dates: end: 199010
  2. TRANEX [Concomitant]
     Active Substance: TRANEXAMIC ACID
     Dosage: UNK

REACTIONS (3)
  - Seizure [Recovered/Resolved]
  - Sleep disorder [Recovered/Resolved]
  - Fear [Recovered/Resolved]
